FAERS Safety Report 8460982-8 (Version None)
Quarter: 2012Q2

REPORT INFORMATION
  Report Type: 
  Country: None (occurrence: None)
  Receive Date: 20120625
  Receipt Date: 20120614
  Transmission Date: 20120825
  Serious: No
  Sender: FDA-Public Use
  Company Number: US-BIOGENIDEC-2012BI021126

PATIENT
  Age: 39 Year
  Sex: Female

DRUGS (2)
  1. TYSABRI [Suspect]
     Indication: MULTIPLE SCLEROSIS
     Route: 042
     Dates: start: 20110412, end: 20120201
  2. TYSABRI [Suspect]
     Route: 042
     Dates: start: 20120401

REACTIONS (2)
  - RESPIRATORY DISORDER [None]
  - PAIN IN EXTREMITY [None]
